FAERS Safety Report 15347624 (Version 3)
Quarter: 2018Q4

REPORT INFORMATION
  Report Type: Spontaneous
  Country: US (occurrence: US)
  Receive Date: 20180904
  Receipt Date: 20181023
  Transmission Date: 20190204
  Serious: Yes (Hospitalization)
  Sender: FDA-Public Use
  Company Number: US-ASTRAZENECA-2018SF09355

PATIENT
  Age: 26790 Day
  Sex: Female
  Weight: 93.9 kg

DRUGS (8)
  1. LISINOPRIL HCTZ [Suspect]
     Active Substance: HYDROCHLOROTHIAZIDE\LISINOPRIL
     Indication: HYPERTENSION
     Route: 048
  2. GABAPENTIN. [Concomitant]
     Active Substance: GABAPENTIN
     Indication: PAIN IN EXTREMITY
     Dosage: 300 MG THREE TIMES IN THE MORNING TO TOTAL 900 MG, AND 3 TIMES AT NIGHT TO TOTAL 900 MG
     Route: 048
  3. MACROBID [Concomitant]
     Active Substance: NITROFURANTOIN\NITROFURANTOIN MONOHYDRATE
     Indication: CYSTITIS
     Route: 048
  4. ROPINIROLE. [Concomitant]
     Active Substance: ROPINIROLE
     Indication: LIMB DISCOMFORT
     Route: 048
  5. CYMBALTA [Concomitant]
     Active Substance: DULOXETINE HYDROCHLORIDE
     Indication: RESTLESS LEGS SYNDROME
     Route: 048
  6. OXYBUTYNIN. [Concomitant]
     Active Substance: OXYBUTYNIN CHLORIDE
     Indication: POLLAKIURIA
     Route: 048
  7. INSULIN [Concomitant]
     Active Substance: INSULIN NOS
  8. BYDUREON BCISE [Suspect]
     Active Substance: EXENATIDE
     Indication: TYPE 2 DIABETES MELLITUS
     Route: 058

REACTIONS (17)
  - Blood glucose abnormal [Unknown]
  - Injection site haemorrhage [Unknown]
  - Hypoaesthesia oral [Not Recovered/Not Resolved]
  - Diarrhoea [Recovered/Resolved]
  - Product dose omission [Unknown]
  - Intentional product misuse [Unknown]
  - Joint injury [Unknown]
  - Injection site erythema [Unknown]
  - Feeling abnormal [Recovered/Resolved]
  - Restless legs syndrome [Unknown]
  - Cystitis [Unknown]
  - Type 2 diabetes mellitus [Unknown]
  - Visual acuity reduced [Unknown]
  - Influenza [Recovered/Resolved]
  - Device malfunction [Unknown]
  - Wrong technique in device usage process [Unknown]
  - Kidney infection [Unknown]

NARRATIVE: CASE EVENT DATE: 20180826
